FAERS Safety Report 5200143-9 (Version None)
Quarter: 2007Q1

REPORT INFORMATION
  Report Type: 
  Country: None (occurrence: None)
  Receive Date: 20070105
  Receipt Date: 20061228
  Transmission Date: 20070707
  Serious: Yes (Hospitalization)
  Sender: FDA-Public Use
  Company Number: BE-ELI_LILLY_AND_COMPANY-BE200701000493

PATIENT
  Age: 67 Year
  Sex: Male
  Weight: 55 kg

DRUGS (7)
  1. PEMETREXED [Suspect]
     Indication: PLEURAL MESOTHELIOMA MALIGNANT
     Dosage: 500 MG/M2, EVERY 3 WEEKS
     Route: 042
     Dates: start: 20051220, end: 20060207
  2. CISPLATIN [Suspect]
     Indication: PLEURAL MESOTHELIOMA MALIGNANT
     Dosage: 75 MG/M2, EVERY THREE WEEKS
     Route: 042
     Dates: start: 20051220, end: 20060207
  3. *RADIATION [Suspect]
     Indication: PLEURAL MESOTHELIOMA MALIGNANT
     Dosage: 54 UNK, UNK
     Dates: start: 20060515
  4. LESTRIC [Concomitant]
     Indication: HYPERTENSION
     Dosage: 20 MG, DAILY (1/D)
     Route: 048
     Dates: start: 20060301, end: 20060720
  5. LANOXIN [Concomitant]
     Indication: HYPERTENSION
     Dosage: 0.125 MG, DAILY (1/D)
     Route: 048
     Dates: start: 20060608
  6. ZANTAC [Concomitant]
     Indication: PROPHYLAXIS
     Dosage: 300 MG, DAILY (1/D)
     Route: 048
     Dates: start: 20060301
  7. TILDIEM [Concomitant]
     Indication: HYPERTENSION
     Dosage: 200 MG, DAILY (1/D)
     Route: 048
     Dates: start: 20060616, end: 20060717

REACTIONS (3)
  - ASPERGILLOSIS [None]
  - RESPIRATORY FAILURE [None]
  - SEPTIC SHOCK [None]
